FAERS Safety Report 8416799 (Version 4)
Quarter: 2016Q1

REPORT INFORMATION
  Report Type: Report from Study
  Country: CA (occurrence: CA)
  Receive Date: 20120220
  Receipt Date: 20160328
  Transmission Date: 20160526
  Serious: Yes (Other)
  Sender: FDA-Public Use
  Company Number: PHHY2011CA102061

PATIENT
  Age: 82 Year
  Sex: Female

DRUGS (4)
  1. ACLASTA [Suspect]
     Active Substance: ZOLEDRONIC ACID
     Dosage: 5 MG, UNK
     Route: 042
     Dates: start: 20130206
  2. ACLASTA [Suspect]
     Active Substance: ZOLEDRONIC ACID
     Dosage: 5 MG, UNK
     Route: 042
     Dates: start: 20120214
  3. ACLASTA [Suspect]
     Active Substance: ZOLEDRONIC ACID
     Dosage: 5 MG, UNK
     Route: 042
     Dates: start: 20140625
  4. ACLASTA [Suspect]
     Active Substance: ZOLEDRONIC ACID
     Indication: OSTEOPOROSIS
     Dosage: 5 MG, UNK
     Route: 042
     Dates: start: 20110209

REACTIONS (14)
  - Fall [Unknown]
  - Breast discomfort [Unknown]
  - Musculoskeletal pain [Recovering/Resolving]
  - Sciatica [Unknown]
  - Mobility decreased [Unknown]
  - Breast pain [Unknown]
  - Injury [Unknown]
  - Head injury [Unknown]
  - Pain in extremity [Recovering/Resolving]
  - Arthralgia [Recovering/Resolving]
  - Dysphagia [Unknown]
  - Limb injury [Unknown]
  - Anxiety [Not Recovered/Not Resolved]
  - Finger deformity [Unknown]

NARRATIVE: CASE EVENT DATE: 20130111
